FAERS Safety Report 12234418 (Version 1)
Quarter: 2016Q2

REPORT INFORMATION
  Report Type: Spontaneous
  Country: FR (occurrence: FR)
  Receive Date: 20160404
  Receipt Date: 20160404
  Transmission Date: 20160815
  Serious: Yes (Hospitalization, Disabling)
  Sender: FDA-Public Use
  Company Number: FR-BD RX INC-2016BDR00016

PATIENT
  Sex: Male

DRUGS (2)
  1. DEXAMETHASONE SODIUM PHOSPHATE. [Suspect]
     Active Substance: DEXAMETHASONE SODIUM PHOSPHATE
     Indication: DIABETIC RETINAL OEDEMA
     Dosage: INTRAVITREAL IMPLANT, RIGHT EYE
     Route: 031
  2. MYCOPHENOLATE MOFETIL. [Suspect]
     Active Substance: MYCOPHENOLATE MOFETIL
     Indication: NEPHRITIS
     Route: 065

REACTIONS (4)
  - Cardiac failure [Recovered/Resolved]
  - Blindness [Not Recovered/Not Resolved]
  - Renal failure [Recovered/Resolved]
  - Necrotising fasciitis streptococcal [Recovered/Resolved]
